FAERS Safety Report 5953031-4 (Version None)
Quarter: 2008Q4

REPORT INFORMATION
  Report Type: 
  Country: None (occurrence: None)
  Receive Date: 20081114
  Receipt Date: 20080905
  Transmission Date: 20090506
  Serious: No
  Sender: FDA-Public Use
  Company Number: US-BRISTOL-MYERS SQUIBB COMPANY-14326979

PATIENT
  Sex: Female

DRUGS (1)
  1. IXEMPRA FOR INJ [Suspect]

REACTIONS (1)
  - INFUSION RELATED REACTION [None]
